FAERS Safety Report 8194280-7 (Version None)
Quarter: 2012Q1

REPORT INFORMATION
  Report Type: 
  Country: None (occurrence: None)
  Receive Date: 20120308
  Receipt Date: 20120229
  Transmission Date: 20120608
  Serious: Yes (Hospitalization)
  Sender: FDA-Public Use
  Company Number: LT-JNJFOC-20120300622

PATIENT
  Age: 65 Year
  Sex: Female
  Weight: 68 kg

DRUGS (4)
  1. INFLIXIMAB, RECOMBINANT [Suspect]
     Indication: ANKYLOSING SPONDYLITIS
     Route: 042
     Dates: start: 20070920, end: 20111130
  2. PREDNISONE TAB [Concomitant]
     Dates: start: 20070101, end: 20111201
  3. METHOTREXATE [Concomitant]
     Dates: start: 20070101, end: 20111201
  4. METOPROLOL SUCCINATE [Concomitant]
     Indication: HYPERTENSION
     Dates: start: 20060101

REACTIONS (1)
  - GASTRIC CANCER [None]
